FAERS Safety Report 11860453 (Version 3)
Quarter: 2018Q4

REPORT INFORMATION
  Report Type: Spontaneous
  Country: US (occurrence: US)
  Receive Date: 20151222
  Receipt Date: 20181022
  Transmission Date: 20190204
  Serious: Yes (Hospitalization, Other)
  Sender: FDA-Public Use
  Company Number: US-DSJP-DSU-2015-133408

PATIENT

DRUGS (2)
  1. ASPIRIN                            /00002701/ [Concomitant]
     Active Substance: ASPIRIN
     Indication: PRODUCT USED FOR UNKNOWN INDICATION
     Dosage: UNK, QD
     Dates: start: 2011
  2. BENICAR HCT [Suspect]
     Active Substance: HYDROCHLOROTHIAZIDE\OLMESARTAN MEDOXOMIL
     Indication: HYPERTENSION
     Dosage: 40-25 MG, QD
     Route: 048
     Dates: start: 20130101

REACTIONS (14)
  - Acute kidney injury [Unknown]
  - Constipation [Not Recovered/Not Resolved]
  - Cholecystitis acute [Recovered/Resolved]
  - Dizziness [Unknown]
  - Gastrointestinal haemorrhage [Unknown]
  - Haematemesis [Unknown]
  - Sprue-like enteropathy [Not Recovered/Not Resolved]
  - Oesophagitis haemorrhagic [Unknown]
  - Loss of consciousness [Recovered/Resolved]
  - Gastric stenosis [Unknown]
  - Hiatus hernia [Not Recovered/Not Resolved]
  - Gastric ulcer [Unknown]
  - Throat tightness [Recovered/Resolved]
  - Gastrooesophageal reflux disease [Not Recovered/Not Resolved]

NARRATIVE: CASE EVENT DATE: 201309
